FAERS Safety Report 25218832 (Version 1)
Quarter: 2025Q2

REPORT INFORMATION
  Report Type: Spontaneous
  Country: MX (occurrence: MX)
  Receive Date: 20250421
  Receipt Date: 20250421
  Transmission Date: 20250716
  Serious: Yes (Other)
  Sender: EPIC PHARM
  Company Number: MX-EPICPHARMA-MX-2025EPCLIT00446

PATIENT
  Age: 64 Year
  Sex: Male

DRUGS (1)
  1. AMIODARONE HYDROCHLORIDE [Suspect]
     Active Substance: AMIODARONE HYDROCHLORIDE
     Indication: Ventricular extrasystoles
     Route: 065

REACTIONS (2)
  - Pulmonary hypertension [Recovered/Resolved]
  - Product use in unapproved indication [Unknown]
